FAERS Safety Report 25911049 (Version 3)
Quarter: 2025Q4

REPORT INFORMATION
  Report Type: Spontaneous
  Country: US (occurrence: US)
  Receive Date: 20251013
  Receipt Date: 20251020
  Transmission Date: 20260118
  Serious: Yes (Other)
  Sender: Kenvue
  Company Number: US-KENVUE-20251000729

PATIENT
  Sex: Male

DRUGS (1)
  1. TYLENOL EXTRA STRENGTH [Suspect]
     Active Substance: ACETAMINOPHEN
     Indication: Pain
     Dosage: 1 TABLET, FOUR TIME A DAY
     Route: 048
     Dates: start: 202509, end: 2025

REACTIONS (4)
  - Foreign body in throat [Recovering/Resolving]
  - Product complaint [Unknown]
  - Incorrect dose administered [Unknown]
  - Illness [Recovering/Resolving]

NARRATIVE: CASE EVENT DATE: 20250101
